FAERS Safety Report 23952084 (Version 1)
Quarter: 2024Q2

REPORT INFORMATION
  Report Type: Spontaneous
  Country: ZA (occurrence: ZA)
  Receive Date: 20240607
  Receipt Date: 20240607
  Transmission Date: 20240716
  Serious: Yes (Other)
  Sender: FDA-Public Use
  Company Number: ZA-TEVA-VS-3204438

PATIENT
  Age: 83 Year
  Sex: Female
  Weight: 75 kg

DRUGS (2)
  1. FULVESTRANT [Suspect]
     Active Substance: FULVESTRANT
     Indication: Breast cancer
     Route: 030
     Dates: start: 20200715
  2. ZOMETA [Concomitant]
     Active Substance: ZOLEDRONIC ACID
     Indication: Metastases to bone
     Route: 042
     Dates: start: 20200715

REACTIONS (3)
  - Bladder cancer [Unknown]
  - Injection site pain [Unknown]
  - Injection site haemorrhage [Unknown]

NARRATIVE: CASE EVENT DATE: 20240304
